FAERS Safety Report 6076732-9 (Version None)
Quarter: 2009Q1

REPORT INFORMATION
  Report Type: 
  Country: None (occurrence: None)
  Receive Date: 20090213
  Receipt Date: 20090209
  Transmission Date: 20090719
  Serious: Yes (Death, Hospitalization, Disabling)
  Sender: FDA-Public Use
  Company Number: BR-ABBOTT-09P-020-0500635-00

PATIENT
  Sex: Female

DRUGS (4)
  1. HUMIRA [Suspect]
     Indication: RHEUMATOID ARTHRITIS
     Route: 058
     Dates: start: 20060701, end: 20081112
  2. HYDROCHLOROTHIAZIDE [Concomitant]
     Indication: CARDIAC DISORDER
  3. UNKNOWN MEDICATION [Concomitant]
     Indication: CARDIAC DISORDER
  4. UNKNOWN MEDICATION [Concomitant]
     Indication: RHEUMATOID ARTHRITIS

REACTIONS (6)
  - ABASIA [None]
  - EMBOLISM [None]
  - HYPOTENSION [None]
  - PAIN IN EXTREMITY [None]
  - PULMONARY EMBOLISM [None]
  - THROMBOSIS [None]
